FAERS Safety Report 17023624 (Version 1)
Quarter: 2019Q4

REPORT INFORMATION
  Report Type: Spontaneous
  Country: FR (occurrence: FR)
  Receive Date: 20191113
  Receipt Date: 20191113
  Transmission Date: 20200122
  Serious: Yes (Death, Other)
  Sender: FDA-Public Use
  Company Number: FR-RICONPHARMA, LLC-2019RIC000071

PATIENT
  Age: 38 Year
  Sex: Female

DRUGS (5)
  1. BETAMETHASONE VALERATE. [Suspect]
     Active Substance: BETAMETHASONE VALERATE
     Indication: NETHERTON^S SYNDROME
     Dosage: 600 G PER MONTH OR 7.2 KG PER YEAR FOR MORE THAN 10 YEARS
     Route: 061
  2. DEXERYL [Concomitant]
     Indication: NETHERTON^S SYNDROME
     Dosage: UNK, QD
     Route: 061
  3. METHOTREXATE. [Concomitant]
     Active Substance: METHOTREXATE
     Indication: RHEUMATOID ARTHRITIS
     Dosage: 10 MILLIGRAM, 1 TIMES A WEEK
     Route: 065
  4. TRIFLUCAN [Concomitant]
     Active Substance: FLUCONAZOLE
     Indication: INTERTRIGO
     Dosage: UNK
     Route: 065
  5. GENTAMICIN. [Concomitant]
     Active Substance: GENTAMICIN
     Indication: INTERTRIGO
     Dosage: UNK
     Route: 065

REACTIONS (5)
  - Osteoporosis [Unknown]
  - Septic shock [Fatal]
  - Fibula fracture [Unknown]
  - Cushing^s syndrome [Unknown]
  - Multiple organ dysfunction syndrome [Fatal]
